FAERS Safety Report 4342928-7 (Version None)
Quarter: 2004Q1

REPORT INFORMATION
  Report Type: 
  Country: None (occurrence: None)
  Receive Date: 20040325
  Receipt Date: 20031217
  Transmission Date: 20041129
  Serious: No
  Sender: FDA-Public Use
  Company Number: USA030742149

PATIENT
  Age: 59 Year
  Sex: Female
  Weight: 53 kg

DRUGS (9)
  1. FORTEO [Suspect]
     Indication: OSTEOPOROSIS
     Dosage: 20 UG/DAY
     Dates: start: 20030627
  2. PREMARIN [Concomitant]
  3. CALCIUM [Concomitant]
  4. PREDNISONE [Concomitant]
  5. NORVASC [Concomitant]
  6. VITAMIN E [Concomitant]
  7. ALBUTEROL [Concomitant]
  8. PROTONIX [Concomitant]
  9. VITAMIN C [Concomitant]

REACTIONS (2)
  - CHEST PAIN [None]
  - RIB FRACTURE [None]
